FAERS Safety Report 5526793-8 (Version None)
Quarter: 2007Q4

REPORT INFORMATION
  Report Type: 
  Country: None (occurrence: None)
  Receive Date: 20071127
  Receipt Date: 20071120
  Transmission Date: 20080405
  Serious: Yes (Hospitalization)
  Sender: FDA-Public Use
  Company Number: US-ROCHE-523709

PATIENT
  Age: 51 Year
  Sex: Female
  Weight: 63.5 kg

DRUGS (1)
  1. BONIVA [Suspect]
     Indication: OSTEOPENIA
     Route: 048
     Dates: start: 20070601, end: 20070721

REACTIONS (4)
  - DEHYDRATION [None]
  - DIARRHOEA [None]
  - NAUSEA [None]
  - VOMITING [None]
